FAERS Safety Report 13818833 (Version 1)
Quarter: 2017Q3

REPORT INFORMATION
  Report Type: Report from Study
  Country: US (occurrence: US)
  Receive Date: 20170731
  Receipt Date: 20170731
  Transmission Date: 20171127
  Serious: Yes (Hospitalization)
  Sender: FDA-Public Use
  Company Number: US-EXELIXIS-CABO-17008461

PATIENT
  Age: 74 Year
  Sex: Female

DRUGS (19)
  1. TRAMADOL. [Concomitant]
     Active Substance: TRAMADOL
  2. ONDANSETRON [Concomitant]
     Active Substance: ONDANSETRON
  3. GABAPENTIN. [Concomitant]
     Active Substance: GABAPENTIN
  4. CLOPIDOGREL [Concomitant]
     Active Substance: CLOPIDOGREL BISULFATE
  5. COREG [Concomitant]
     Active Substance: CARVEDILOL
  6. HYDROCODONE/PARACETAMOL [Concomitant]
     Active Substance: ACETAMINOPHEN\HYDROCODONE BITARTRATE
  7. PANTOPRAZOLE [Concomitant]
     Active Substance: PANTOPRAZOLE
  8. CRESTOR [Concomitant]
     Active Substance: ROSUVASTATIN CALCIUM
  9. AFINITOR [Suspect]
     Active Substance: EVEROLIMUS
  10. LYRICA [Concomitant]
     Active Substance: PREGABALIN
  11. DOXYCYCLINE. [Concomitant]
     Active Substance: DOXYCYCLINE
  12. CABOMETYX [Suspect]
     Active Substance: CABOZANTINIB S-MALATE
     Indication: RENAL CANCER
     Dosage: 60 MG, QD
     Route: 048
     Dates: start: 20170222, end: 201703
  13. NIFEDICAL XL [Concomitant]
     Active Substance: NIFEDIPINE
  14. MELOXICAM. [Concomitant]
     Active Substance: MELOXICAM
  15. LIDOCAINE. [Concomitant]
     Active Substance: LIDOCAINE
  16. BACLOFEN. [Concomitant]
     Active Substance: BACLOFEN
  17. OMEPRAZOLE. [Concomitant]
     Active Substance: OMEPRAZOLE
  18. LISINOPRIL AND HYDROCHLOROTHIAZIDE [Concomitant]
     Active Substance: HYDROCHLOROTHIAZIDE\LISINOPRIL
  19. FENTANYL. [Concomitant]
     Active Substance: FENTANYL

REACTIONS (3)
  - Spinal fracture [Recovering/Resolving]
  - Diarrhoea [Not Recovered/Not Resolved]
  - Hypertension [Not Recovered/Not Resolved]

NARRATIVE: CASE EVENT DATE: 20170224
